FAERS Safety Report 13423871 (Version 1)
Quarter: 2017Q2

REPORT INFORMATION
  Report Type: Spontaneous
  Country: JP (occurrence: JP)
  Receive Date: 20170410
  Receipt Date: 20170410
  Transmission Date: 20170830
  Serious: Yes (Hospitalization)
  Sender: FDA-Public Use
  Company Number: JP-PFIZER INC-2017154561

PATIENT
  Age: 77 Year
  Sex: Female

DRUGS (1)
  1. AROMASIN [Suspect]
     Active Substance: EXEMESTANE

REACTIONS (5)
  - Back pain [Unknown]
  - Condition aggravated [Unknown]
  - Pleural effusion [Unknown]
  - Respiratory disorder [Unknown]
  - Dyspnoea [Unknown]
